FAERS Safety Report 15491056 (Version 1)
Quarter: 2018Q4

REPORT INFORMATION
  Report Type: Spontaneous
  Country: ES (occurrence: ES)
  Receive Date: 20181012
  Receipt Date: 20181012
  Transmission Date: 20190205
  Serious: Yes (Hospitalization)
  Sender: FDA-Public Use
  Company Number: ES-ROCHE-2198098

PATIENT
  Age: 70 Year
  Sex: Female
  Weight: 70 kg

DRUGS (2)
  1. EDEMOX [Concomitant]
     Active Substance: ACETAZOLAMIDE
     Indication: DIABETIC RETINOPATHY
     Dosage: 1 COMP?LAST DOSE 11/JUN/2018
     Route: 048
     Dates: start: 20180611
  2. AVASTIN [Suspect]
     Active Substance: BEVACIZUMAB
     Indication: DIABETIC RETINOPATHY
     Dosage: LAST DOSE 11/JUN/2018
     Route: 031
     Dates: start: 20180611

REACTIONS (2)
  - Shock [Recovered/Resolved]
  - Off label use [Unknown]

NARRATIVE: CASE EVENT DATE: 20180611
